FAERS Safety Report 24664131 (Version 1)
Quarter: 2024Q4

REPORT INFORMATION
  Report Type: Spontaneous
  Country: JP (occurrence: JP)
  Receive Date: 20241126
  Receipt Date: 20241126
  Transmission Date: 20250115
  Serious: Yes (Other)
  Sender: BAXTER
  Company Number: JP-shionogi-202400002764

PATIENT
  Age: 79 Year
  Sex: Female

DRUGS (2)
  1. CYCLOPHOSPHAMIDE [Suspect]
     Active Substance: CYCLOPHOSPHAMIDE
     Indication: Breast cancer female
     Dosage: 115 MG/DAY, DAY 1 (EC THERAPY, NEOADJUVANT CHEMOTHERAPY)
     Route: 065
  2. EPIRUBICIN HYDROCHLORIDE [Suspect]
     Active Substance: EPIRUBICIN HYDROCHLORIDE
     Indication: Breast cancer female
     Dosage: DAY 1, (EC THERAPY, NEOADJUVANT CHEMOTHERAPY)
     Route: 065

REACTIONS (1)
  - Diverticular perforation [Unknown]
